FAERS Safety Report 8818483 (Version 1)
Quarter: 2012Q4

REPORT INFORMATION
  Report Type: Spontaneous
  Country: FR (occurrence: None)
  Receive Date: 20121003
  Receipt Date: 20121003
  Transmission Date: 20130627
  Serious: Yes (Hospitalization)
  Sender: FDA-Public Use
  Company Number: TPA2012A07302

PATIENT
  Age: 5 Decade
  Sex: Male

DRUGS (1)
  1. ADENURIC [Suspect]
     Indication: GOUT
     Route: 048
     Dates: start: 201208

REACTIONS (3)
  - Neuropathy peripheral [None]
  - Pruritus [None]
  - Arthralgia [None]
